FAERS Safety Report 9527681 (Version 1)
Quarter: 2013Q1

REPORT INFORMATION
  Report Type: Spontaneous
  Country: US (occurrence: None)
  Receive Date: 20130314
  Receipt Date: 20130314
  Transmission Date: 20140127
  Serious: No
  Sender: FDA-Public Use
  Company Number: 1211USA007157

PATIENT
  Sex: Male

DRUGS (5)
  1. PEG-INTRON [Suspect]
     Indication: HEPATITIS C
     Dosage: 120 MICROGRAM, QW, SUBCUTANEOUS?
     Route: 058
  2. VICTRELIS [Suspect]
     Dosage: 800 MICROGRAM, TID
  3. RIBAPAK (RIBAVIRIN) [Suspect]
  4. PROCRIT [Concomitant]
  5. METFORMIN (METFORMIN) [Concomitant]

REACTIONS (3)
  - Muscle spasms [None]
  - Depression [None]
  - Rash [None]
